FAERS Safety Report 6552922-3 (Version None)
Quarter: 2010Q1

REPORT INFORMATION
  Report Type: 
  Country: None (occurrence: None)
  Receive Date: 20100122
  Receipt Date: 20100113
  Transmission Date: 20100710
  Serious: Yes (Death)
  Sender: FDA-Public Use
  Company Number: 008558

PATIENT
  Age: 69 Year
  Sex: Female

DRUGS (2)
  1. SAMSCA [Suspect]
     Indication: INAPPROPRIATE ANTIDIURETIC HORMONE SECRETION
     Dosage: 15 MG, SINGLE ORAL
     Route: 048
     Dates: start: 20091128, end: 20091128
  2. DEMECLOCYCLINE HCL [Concomitant]

REACTIONS (3)
  - BLOOD SODIUM INCREASED [None]
  - LUNG NEOPLASM MALIGNANT [None]
  - MALIGNANT NEOPLASM PROGRESSION [None]
